FAERS Safety Report 5922687-4 (Version None)
Quarter: 2008Q4

REPORT INFORMATION
  Report Type: 
  Country: None (occurrence: None)
  Receive Date: 20081017
  Receipt Date: 20081007
  Transmission Date: 20090506
  Serious: Yes (Hospitalization)
  Sender: FDA-Public Use
  Company Number: US-ELI_LILLY_AND_COMPANY-US200804005862

PATIENT
  Age: 24 Year
  Sex: Female

DRUGS (1)
  1. ZYPREXA [Suspect]
     Indication: PANIC ATTACK
     Dosage: UNK, DAILY (1/D)
     Dates: start: 20040719, end: 20050101

REACTIONS (5)
  - ABDOMINAL PAIN [None]
  - NAUSEA [None]
  - PANCREATITIS NECROTISING [None]
  - TYPE 2 DIABETES MELLITUS [None]
  - VOMITING [None]
